FAERS Safety Report 6250060-0 (Version None)
Quarter: 2009Q2

REPORT INFORMATION
  Report Type: 
  Country: None (occurrence: None)
  Receive Date: 20090629
  Receipt Date: 20090622
  Transmission Date: 20091009
  Serious: Yes (Hospitalization, Disabling)
  Sender: FDA-Public Use
  Company Number: NO-MERCK-0906NOR00007

PATIENT
  Age: 79 Year
  Sex: Female

DRUGS (11)
  1. FOSAMAX [Suspect]
     Indication: OSTEOPOROSIS
     Route: 048
     Dates: start: 20060601, end: 20090518
  2. FENTANYL [Concomitant]
     Indication: PAIN
     Route: 061
  3. FENTANYL [Concomitant]
     Indication: OSTEOPOROSIS
     Route: 061
  4. CITALOPRAM HYDROBROMIDE [Concomitant]
     Route: 048
  5. METHOTREXATE [Concomitant]
     Route: 048
  6. ACETAMINOPHEN [Concomitant]
     Route: 048
  7. ASPIRIN AND MAGNESIUM OXIDE [Concomitant]
     Route: 048
  8. CHOLECALCIFEROL [Concomitant]
     Indication: OSTEOPOROSIS
     Route: 048
  9. PREDNISOLONE [Suspect]
     Route: 048
  10. FOLIC ACID [Concomitant]
     Route: 065
  11. ZOPICLONE [Concomitant]
     Route: 048

REACTIONS (2)
  - INFECTION [None]
  - OSTEONECROSIS [None]
